FAERS Safety Report 8702228 (Version 3)
Quarter: 2013Q1

REPORT INFORMATION
  Report Type: Spontaneous
  Country: KR (occurrence: KR)
  Receive Date: 20120803
  Receipt Date: 20130114
  Transmission Date: 20140127
  Serious: Yes (Death)
  Sender: FDA-Public Use
  Company Number: KR-CELGENEUS-286-21880-12072600

PATIENT
  Age: 71 Year
  Sex: Male

DRUGS (6)
  1. REVLIMID [Suspect]
     Indication: PLASMA CELL MYELOMA
     Dosage: 7.5 MILLIGRAM
     Route: 048
     Dates: start: 20111205, end: 20120718
  2. RABEPRAZOL [Concomitant]
     Indication: PRODUCT USED FOR UNKNOWN INDICATION
     Dosage: 20 MILLIGRAM
     Route: 048
     Dates: start: 20120314, end: 20120715
  3. TAMSULOSIN [Concomitant]
     Indication: BENIGN PROSTATIC HYPERPLASIA
     Dosage: .2 MILLIGRAM
     Route: 048
     Dates: start: 20100420, end: 20120717
  4. GABAPENTIN [Concomitant]
     Indication: NEUROPATHY PERIPHERAL
     Dosage: 1200 MILLIGRAM
     Route: 048
     Dates: start: 20110715, end: 20120717
  5. DABEPOETIN [Concomitant]
     Indication: PRODUCT USED FOR UNKNOWN INDICATION
     Dosage: 4.2857 MILLIGRAM
     Route: 041
     Dates: start: 20120314, end: 20120713
  6. RENALMIN [Concomitant]
     Indication: AZOTAEMIA
     Dosage: 1 TABLET
     Route: 048
     Dates: start: 20120314, end: 20120715

REACTIONS (3)
  - Sepsis [Fatal]
  - Pneumonia klebsiella [Fatal]
  - Pancytopenia [Fatal]
